FAERS Safety Report 19935613 (Version 1)
Quarter: 2021Q4

REPORT INFORMATION
  Report Type: Spontaneous
  Country: US (occurrence: US)
  Receive Date: 20211008
  Receipt Date: 20211008
  Transmission Date: 20220303
  Serious: No
  Sender: FDA-Public Use
  Company Number: US-SANOFI-00796359

PATIENT

DRUGS (1)
  1. ELITEK [Suspect]
     Active Substance: RASBURICASE
     Dosage: UNK

REACTIONS (1)
  - Product storage error [Unknown]
